FAERS Safety Report 10833754 (Version 1)
Quarter: 2015Q1

REPORT INFORMATION
  Report Type: Spontaneous
  Country: CA (occurrence: CA)
  Receive Date: 20150219
  Receipt Date: 20150219
  Transmission Date: 20150721
  Serious: Yes (Other)
  Sender: FDA-Public Use
  Company Number: CA-APOTEX-2015AP006791

PATIENT
  Age: 1 Decade
  Sex: Male

DRUGS (1)
  1. APO-CYCLOSPORINE ORAL SOLUTION [Suspect]
     Active Substance: CYCLOSPORINE
     Indication: DERMATITIS ATOPIC
     Route: 065

REACTIONS (3)
  - Pharyngitis streptococcal [Unknown]
  - Respiratory syncytial virus infection [Unknown]
  - Cellulitis [Unknown]
